FAERS Safety Report 12417635 (Version 1)
Quarter: 2016Q2

REPORT INFORMATION
  Report Type: Spontaneous
  Country: JP (occurrence: JP)
  Receive Date: 20160530
  Receipt Date: 20160530
  Transmission Date: 20160815
  Serious: Yes (Other)
  Sender: FDA-Public Use
  Company Number: PHJP2016JP013235

PATIENT
  Sex: Female

DRUGS (1)
  1. FEMARA [Suspect]
     Active Substance: LETROZOLE
     Indication: BREAST CANCER
     Dosage: UNK
     Route: 048

REACTIONS (9)
  - Memory impairment [Unknown]
  - Arthralgia [Unknown]
  - Stomatitis [Unknown]
  - Vascular occlusion [Unknown]
  - Hot flush [Unknown]
  - Abasia [Unknown]
  - Headache [Unknown]
  - Hypertension [Unknown]
  - Thirst [Unknown]
